FAERS Safety Report 12976077 (Version 5)
Quarter: 2019Q3

REPORT INFORMATION
  Report Type: Report from Study
  Country: US (occurrence: US)
  Receive Date: 20161126
  Receipt Date: 20190922
  Transmission Date: 20191004
  Serious: Yes (Other)
  Sender: FDA-Public Use
  Company Number: PHHY2015US158420

PATIENT
  Age: 41 Year
  Sex: Female

DRUGS (1)
  1. GILENYA [Suspect]
     Active Substance: FINGOLIMOD HYDROCHLORIDE
     Indication: MULTIPLE SCLEROSIS
     Dosage: QD
     Route: 048

REACTIONS (16)
  - Pneumonia [Unknown]
  - Sinusitis [Unknown]
  - Bronchitis [Unknown]
  - Tinnitus [Unknown]
  - Muscle spasms [Unknown]
  - Conjunctivitis [Unknown]
  - Computer vision syndrome [Unknown]
  - Dry eye [Unknown]
  - Hypoaesthesia [Unknown]
  - Pain in extremity [Unknown]
  - Hypertonic bladder [Unknown]
  - Herpes zoster [Unknown]
  - Alopecia [Unknown]
  - Abdominal discomfort [Recovered/Resolved]
  - Vision blurred [Unknown]
  - Myopia [Unknown]

NARRATIVE: CASE EVENT DATE: 20150211
